FAERS Safety Report 6654811-2 (Version None)
Quarter: 2010Q1

REPORT INFORMATION
  Report Type: 
  Country: None (occurrence: None)
  Receive Date: 20100329
  Receipt Date: 20100319
  Transmission Date: 20100710
  Serious: Yes (Hospitalization)
  Sender: FDA-Public Use
  Company Number: BE-BIOGENIDEC-2010BI005224

PATIENT
  Age: 35 Year
  Sex: Female

DRUGS (9)
  1. TYSABRI [Suspect]
     Indication: RELAPSING-REMITTING MULTIPLE SCLEROSIS
     Route: 042
     Dates: start: 20080221
  2. CORTICOSTEROIDS (NOS) [Concomitant]
     Dates: start: 20090801, end: 20090801
  3. TAMSULOSIN HCL [Concomitant]
  4. REDOMEX [Concomitant]
  5. EMCONCOR [Concomitant]
  6. LORAMET [Concomitant]
  7. LANZOPRAZOLE [Concomitant]
  8. MOVICOL [Concomitant]
  9. DEPAKENE [Concomitant]

REACTIONS (1)
  - NEPHROLITHIASIS [None]
